FAERS Safety Report 4781365-8 (Version None)
Quarter: 2005Q3

REPORT INFORMATION
  Report Type: 
  Country: None (occurrence: None)
  Receive Date: 20050914
  Receipt Date: 20050111
  Transmission Date: 20060218
  Serious: Yes (Hospitalization)
  Sender: FDA-Public Use
  Company Number: 163-20785-05010219

PATIENT
  Age: 63 Year
  Sex: Male

DRUGS (14)
  1. THALOMID [Suspect]
     Indication: MULTIPLE MYELOMA
     Dosage: 200 MG, AT BEDTIME, ORAL
     Route: 048
     Dates: start: 20030919
  2. PREDNISONE [Concomitant]
  3. COUMADIN [Concomitant]
  4. ACCUPRIL [Concomitant]
  5. METOPROLOL TARTRATE [Concomitant]
  6. PREDNISONE [Concomitant]
  7. COUMADIN [Concomitant]
  8. ACCUPRIL [Concomitant]
  9. METOPROLOL [Concomitant]
  10. SENNA [Concomitant]
  11. VITAMIN B COMPLEX CAP [Concomitant]
  12. FOLIC ACID [Concomitant]
  13. FISH OIL [Concomitant]
  14. LASIX [Concomitant]

REACTIONS (7)
  - CHEST PAIN [None]
  - CONDITION AGGRAVATED [None]
  - DIZZINESS [None]
  - DYSPNOEA [None]
  - GASTROOESOPHAGEAL REFLUX DISEASE [None]
  - HYPERTENSION [None]
  - PLATELET COUNT DECREASED [None]
